FAERS Safety Report 13934157 (Version 1)
Quarter: 2017Q3

REPORT INFORMATION
  Report Type: Spontaneous
  Country: IT (occurrence: IT)
  Receive Date: 20170905
  Receipt Date: 20170905
  Transmission Date: 20171127
  Serious: Yes (Hospitalization)
  Sender: FDA-Public Use
  Company Number: IT-ROCHE-1986973

PATIENT
  Age: 78 Year
  Sex: Male
  Weight: 90 kg

DRUGS (2)
  1. COTELLIC [Suspect]
     Active Substance: COBIMETINIB
     Indication: MALIGNANT MELANOMA
     Dosage: 20 MG,PVC/PVDC BLISTER PACK - 63 (3X21) TABLETS
     Route: 048
     Dates: start: 20170719, end: 20170729
  2. ZELBORAF [Suspect]
     Active Substance: VEMURAFENIB
     Indication: MALIGNANT MELANOMA
     Dosage: 240 MG,BLISTER PACK (ALU/ALU)^ 56 TABLETS
     Route: 048
     Dates: start: 20170719, end: 20170729

REACTIONS (2)
  - Hyponatraemia [Unknown]
  - Erythema [Recovered/Resolved]

NARRATIVE: CASE EVENT DATE: 20170730
